FAERS Safety Report 4610166-6 (Version None)
Quarter: 2005Q1

REPORT INFORMATION
  Report Type: 
  Country: None (occurrence: None)
  Receive Date: 20050316
  Receipt Date: 20050311
  Transmission Date: 20050727
  Serious: Yes (Death, Other)
  Sender: FDA-Public Use
  Company Number: PHBS2005FI03549

PATIENT
  Age: 70 Year
  Sex: Male

DRUGS (1)
  1. ZOMETA [Suspect]
     Indication: PROSTATE CANCER
     Route: 042

REACTIONS (4)
  - LABORATORY TEST ABNORMAL [None]
  - PANCYTOPENIA [None]
  - SEPSIS [None]
  - THROMBOCYTOPENIA [None]
